FAERS Safety Report 5441998-2 (Version None)
Quarter: 2007Q3

REPORT INFORMATION
  Report Type: 
  Country: None (occurrence: None)
  Receive Date: 20070904
  Receipt Date: 20070827
  Transmission Date: 20080115
  Serious: Yes (Other)
  Sender: FDA-Public Use
  Company Number: B0485689A

PATIENT
  Sex: Male

DRUGS (12)
  1. SERETIDE [Suspect]
     Indication: DRUG USE FOR UNKNOWN INDICATION
     Route: 055
  2. CARBASALATE CALCIUM [Suspect]
     Indication: DRUG USE FOR UNKNOWN INDICATION
     Route: 048
  3. RENITEC [Suspect]
     Indication: DRUG USE FOR UNKNOWN INDICATION
     Route: 048
  4. LIPITOR [Suspect]
     Indication: DRUG USE FOR UNKNOWN INDICATION
     Route: 048
  5. AMOXICILLIN [Suspect]
     Indication: DRUG USE FOR UNKNOWN INDICATION
     Route: 048
     Dates: start: 20061006
  6. HYDROCHLOROTHIAZIDE [Suspect]
     Indication: DRUG USE FOR UNKNOWN INDICATION
     Route: 048
  7. IRBESARTAN [Suspect]
     Indication: DRUG USE FOR UNKNOWN INDICATION
     Route: 048
  8. PANTOPRAZOLE SODIUM [Suspect]
     Indication: DRUG USE FOR UNKNOWN INDICATION
     Route: 048
  9. METOPROLOL SUCCINATE [Suspect]
     Indication: DRUG USE FOR UNKNOWN INDICATION
     Route: 048
  10. SPIRIVA [Suspect]
     Indication: DRUG USE FOR UNKNOWN INDICATION
     Route: 055
  11. LAMISIL [Suspect]
     Indication: DRUG USE FOR UNKNOWN INDICATION
     Route: 048
     Dates: start: 20060725
  12. DIFLUCAN [Suspect]
     Indication: DRUG USE FOR UNKNOWN INDICATION
     Route: 048
     Dates: start: 20060125

REACTIONS (1)
  - PEMPHIGOID [None]
